FAERS Safety Report 24293940 (Version 1)
Quarter: 2024Q3

REPORT INFORMATION
  Report Type: Spontaneous
  Country: US (occurrence: None)
  Receive Date: 20240906
  Receipt Date: 20240906
  Transmission Date: 20241016
  Serious: No
  Sender: DOMPE FARMACEUTICI
  Company Number: US-FARMAPROD-202403-0898

PATIENT
  Age: 78 Year
  Sex: Female

DRUGS (5)
  1. OXERVATE [Suspect]
     Active Substance: CENEGERMIN-BKBJ
     Indication: Neurotrophic keratopathy
     Route: 047
     Dates: start: 20240311
  2. OXERVATE [Suspect]
     Active Substance: CENEGERMIN-BKBJ
  3. IBUPROFEN [Concomitant]
     Active Substance: IBUPROFEN
  4. LEVOTHYROXINE SODIUM [Concomitant]
     Active Substance: LEVOTHYROXINE SODIUM
  5. METFORMIN HYDROCHLORIDE [Concomitant]
     Active Substance: METFORMIN HYDROCHLORIDE

REACTIONS (6)
  - Eye pruritus [Unknown]
  - Wrong technique in product usage process [Unknown]
  - Visual impairment [Unknown]
  - Swelling face [Unknown]
  - Eye pain [Not Recovered/Not Resolved]
  - Ocular discomfort [Unknown]

NARRATIVE: CASE EVENT DATE: 20240301
